FAERS Safety Report 7739765-X (Version None)
Quarter: 2011Q3

REPORT INFORMATION
  Report Type: 
  Country: None (occurrence: None)
  Receive Date: 20110906
  Receipt Date: 20110822
  Transmission Date: 20111222
  Serious: Yes (Life-Threatening, Other)
  Sender: FDA-Public Use
  Company Number: MC201100400

PATIENT

DRUGS (3)
  1. ANGIOMAX [Suspect]
     Indication: PERCUTANEOUS CORONARY INTERVENTION
     Dosage: STANDARD, BOLUS, INTRAVENOUS 0.25 MG/KG, HR, INTRAVENOUS
     Route: 042
  2. PLAVIX [Concomitant]
  3. REOPRO [Concomitant]

REACTIONS (2)
  - CARDIAC ARREST [None]
  - RETROPERITONEAL HAEMATOMA [None]
